FAERS Safety Report 7353583-6 (Version None)
Quarter: 2011Q1

REPORT INFORMATION
  Report Type: 
  Country: None (occurrence: None)
  Receive Date: 20110315
  Receipt Date: 20110302
  Transmission Date: 20110831
  Serious: Yes (Hospitalization)
  Sender: FDA-Public Use
  Company Number: TR-MYLANLABS-2011S1004394

PATIENT
  Age: 56 Year
  Sex: Female

DRUGS (2)
  1. CALCIUM FOLINATE [Concomitant]
     Indication: COLON CANCER
     Route: 065
  2. FLUOROURACIL [Suspect]
     Indication: COLON CANCER
     Route: 065

REACTIONS (1)
  - WERNICKE'S ENCEPHALOPATHY [None]
